FAERS Safety Report 7198463-4 (Version None)
Quarter: 2010Q4

REPORT INFORMATION
  Report Type: 
  Country: None (occurrence: None)
  Receive Date: 20101227
  Receipt Date: 20101220
  Transmission Date: 20110411
  Serious: Yes (Other)
  Sender: FDA-Public Use
  Company Number: PHHY2010BR86223

PATIENT
  Age: 61 Year
  Sex: Female

DRUGS (1)
  1. STALEVO 100 [Suspect]
     Dosage: 50/12.5/200 MG UNK
     Route: 048

REACTIONS (4)
  - DIZZINESS [None]
  - DYSSTASIA [None]
  - NAUSEA [None]
  - TREMOR [None]
